FAERS Safety Report 23434068 (Version 2)
Quarter: 2024Q1

REPORT INFORMATION
  Report Type: Spontaneous
  Country: US (occurrence: US)
  Receive Date: 20240123
  Receipt Date: 20240131
  Transmission Date: 20240409
  Serious: Yes (Death, Other)
  Sender: FDA-Public Use
  Company Number: US-Stemline Therapeutics, Inc.-2024ST000452

PATIENT
  Sex: Male

DRUGS (2)
  1. ELZONRIS [Suspect]
     Active Substance: TAGRAXOFUSP-ERZS
     Indication: Blastic plasmacytoid dendritic cell neoplasia
     Dosage: A TOTAL OF 28 DOSES
     Route: 042
  2. VENETOCLAX [Suspect]
     Active Substance: VENETOCLAX
     Indication: Blastic plasmacytoid dendritic cell neoplasia
     Route: 065

REACTIONS (4)
  - Death [Fatal]
  - Capillary leak syndrome [Unknown]
  - Drug resistance [Unknown]
  - Neoplasm recurrence [Unknown]
